FAERS Safety Report 6467945-2 (Version None)
Quarter: 2009Q4

REPORT INFORMATION
  Report Type: 
  Country: None (occurrence: None)
  Receive Date: 20091202
  Receipt Date: 20091125
  Transmission Date: 20100525
  Serious: Yes (Other)
  Sender: FDA-Public Use
  Company Number: JP-ABBOTT-09P-087-0610938-00

PATIENT
  Age: 54 Year
  Sex: Female

DRUGS (3)
  1. CLARITH [Suspect]
     Indication: HELICOBACTER INFECTION
  2. AMOLIN [Suspect]
     Indication: HELICOBACTER INFECTION
     Route: 048
  3. TAKEPRON [Suspect]
     Indication: HELICOBACTER INFECTION
     Route: 048

REACTIONS (1)
  - ERYTHEMA MULTIFORME [None]
